FAERS Safety Report 9338974 (Version 2)
Quarter: 2013Q4

REPORT INFORMATION
  Report Type: Spontaneous
  Country: GB (occurrence: GB)
  Receive Date: 20130610
  Receipt Date: 20131106
  Transmission Date: 20140711
  Serious: Yes (Other)
  Sender: FDA-Public Use
  Company Number: PHHY2013GB056298

PATIENT
  Age: 77 Year
  Sex: Male
  Weight: 81 kg

DRUGS (9)
  1. INDAPAMIDE [Suspect]
     Indication: HYPERTENSION
     Dosage: 2.5 MG, UNK
     Route: 048
     Dates: start: 20130430, end: 20130504
  2. PERINDOPRIL [Concomitant]
     Indication: BLOOD PRESSURE
     Dosage: 8 MG, UNK
     Route: 048
  3. PERINDOPRIL [Concomitant]
     Dosage: ONGOING TREATMENT
     Route: 048
  4. ALLOPURINOL [Concomitant]
     Indication: GOUT
     Dosage: 300 MG, UNK
     Route: 048
  5. ALLOPURINOL [Concomitant]
     Dosage: ONGOING TREATMENT
     Route: 048
  6. AMLODIPINE [Concomitant]
     Indication: BLOOD PRESSURE
     Dosage: 5 MG, UNK
     Route: 048
  7. AMLODIPINE [Concomitant]
     Dosage: ONGOING TREATMENT
     Route: 048
  8. DOXYCYCLINE [Concomitant]
     Indication: ROSACEA
     Dosage: 100 MG, UNK
     Route: 048
  9. CO-CODAMOL [Concomitant]
     Indication: PAIN
     Dosage: UNK
     Route: 048

REACTIONS (3)
  - Blister [Recovering/Resolving]
  - Erythema [Recovering/Resolving]
  - Rash [Unknown]
